FAERS Safety Report 4681917-X (Version None)
Quarter: 2005Q2

REPORT INFORMATION
  Report Type: 
  Country: None (occurrence: None)
  Receive Date: 20050602
  Receipt Date: 20050518
  Transmission Date: 20051028
  Serious: Yes (Hospitalization)
  Sender: FDA-Public Use
  Company Number: 2005JP000928

PATIENT
  Age: 7 Year
  Sex: Male

DRUGS (8)
  1. PROGRAF [Suspect]
     Indication: RENAL TRANSPLANT
     Dosage: ORAL
     Route: 048
     Dates: start: 19990907
  2. METHYLPREDNISOLONE [Concomitant]
  3. MIZORBINE (MIZORBINE) [Concomitant]
  4. SELBEX (TEPRENONE) [Concomitant]
  5. URINORM (BENZBROMARONE) [Concomitant]
  6. ZOVIRAX [Concomitant]
  7. COTRIM [Concomitant]
  8. NU-LOTAN (LOSARTAN POTASSIUM) [Concomitant]

REACTIONS (2)
  - GLOMERULONEPHRITIS FOCAL [None]
  - NEPHROPATHY TOXIC [None]
